FAERS Safety Report 25685271 (Version 1)
Quarter: 2025Q3

REPORT INFORMATION
  Report Type: Spontaneous
  Country: US (occurrence: None)
  Receive Date: 20250814
  Receipt Date: 20250814
  Transmission Date: 20251021
  Serious: No
  Sender: FDA-CTU
  Company Number: None

PATIENT
  Age: 27 Year
  Sex: Female

DRUGS (2)
  1. ZURZUVAE [Suspect]
     Active Substance: ZURANOLONE
     Dosage: FREQUENCY : AT BEDTIME;?
     Route: 048
     Dates: end: 20250723
  2. LAMOTRIGINE [Concomitant]
     Active Substance: LAMOTRIGINE

REACTIONS (3)
  - Dizziness [None]
  - Gait disturbance [None]
  - Depressed mood [None]

NARRATIVE: CASE EVENT DATE: 20250718
